FAERS Safety Report 6263411-8 (Version None)
Quarter: 2009Q3

REPORT INFORMATION
  Report Type: 
  Country: None (occurrence: None)
  Receive Date: 20090710
  Receipt Date: 20081203
  Transmission Date: 20100115
  Serious: No
  Sender: FDA-Public Use
  Company Number: A0759066A

PATIENT
  Age: 9 Year
  Sex: Female

DRUGS (7)
  1. FLOVENT [Suspect]
     Indication: ASTHMA
     Route: 055
     Dates: start: 20050101
  2. ALBUTEROL [Concomitant]
  3. XOPENEX [Concomitant]
  4. HUMALOG [Concomitant]
  5. LANTUS [Concomitant]
  6. SINGULAIR [Concomitant]
  7. PHENYL CHLOR-TAN [Concomitant]

REACTIONS (6)
  - BLOOD GLUCOSE FLUCTUATION [None]
  - COUGH [None]
  - EXPIRED DRUG ADMINISTERED [None]
  - NASOPHARYNGITIS [None]
  - THERAPEUTIC RESPONSE DECREASED [None]
  - URINE KETONE BODY PRESENT [None]
